FAERS Safety Report 5515164-6 (Version None)
Quarter: 2007Q4

REPORT INFORMATION
  Report Type: 
  Country: None (occurrence: None)
  Receive Date: 20071113
  Receipt Date: 20070125
  Transmission Date: 20080405
  Serious: Yes (Other)
  Sender: FDA-Public Use
  Company Number: A0637033A

PATIENT
  Age: 58 Year
  Sex: Female

DRUGS (12)
  1. COREG [Suspect]
     Dosage: 25MG TWICE PER DAY
     Route: 048
     Dates: start: 19981001
  2. LANOXIN [Concomitant]
  3. METFORMIN HCL [Concomitant]
  4. TRICOR [Concomitant]
  5. NORVASC [Concomitant]
  6. CLONIDINE [Concomitant]
  7. MULTI-VITAMIN [Concomitant]
  8. ZETIA [Concomitant]
  9. CRESTOR [Concomitant]
  10. ASPIRIN [Concomitant]
  11. LYRICA [Concomitant]
  12. TRAMADOL [Concomitant]

REACTIONS (1)
  - DIABETES MELLITUS [None]
